FAERS Safety Report 8350307-0 (Version None)
Quarter: 2012Q2

REPORT INFORMATION
  Report Type: 
  Country: None (occurrence: None)
  Receive Date: 20120510
  Receipt Date: 20120509
  Transmission Date: 20120825
  Serious: Yes (Other)
  Sender: FDA-Public Use
  Company Number: US-PFIZER INC-2012113528

PATIENT
  Sex: Female

DRUGS (4)
  1. ZOLOFT [Suspect]
     Dosage: 150MG, DAILY
     Route: 048
     Dates: start: 20120101
  2. ZOLOFT [Suspect]
     Indication: BIPOLAR DISORDER
     Dosage: 100 MG, DAILY
     Route: 048
     Dates: start: 20110801, end: 20120101
  3. SEROQUEL XR [Suspect]
     Indication: ANXIETY
     Dosage: 150 MG, DAILY
     Dates: end: 20120401
  4. DEPAKOTE ER [Concomitant]
     Indication: BIPOLAR DISORDER
     Dosage: 500 MG, DAILY

REACTIONS (5)
  - ACTIVITIES OF DAILY LIVING IMPAIRED [None]
  - DEPRESSED MOOD [None]
  - PSYCHOMOTOR RETARDATION [None]
  - ANXIETY [None]
  - PAIN [None]
